FAERS Safety Report 8241507-9 (Version None)
Quarter: 2012Q1

REPORT INFORMATION
  Report Type: 
  Country: None (occurrence: None)
  Receive Date: 20120328
  Receipt Date: 20110824
  Transmission Date: 20120608
  Serious: No
  Sender: FDA-Public Use
  Company Number: US-COVIDIEN/TYCO HEALTHCARE/MALLINCKRODT-T201101758

PATIENT
  Sex: Female

DRUGS (2)
  1. BENADRYL [Suspect]
  2. METHADOSE [Suspect]
     Dosage: 140 MG, QD

REACTIONS (2)
  - POTENTIATING DRUG INTERACTION [None]
  - ANALGESIC DRUG LEVEL BELOW THERAPEUTIC [None]
